FAERS Safety Report 17073606 (Version 1)
Quarter: 2019Q4

REPORT INFORMATION
  Report Type: Report from Study
  Country: US (occurrence: US)
  Receive Date: 20191126
  Receipt Date: 20191126
  Transmission Date: 20200122
  Serious: Yes (Death)
  Sender: FDA-Public Use
  Company Number: US-ACTELION-A-US2019-187234

PATIENT
  Age: 79 Year
  Sex: Female
  Weight: 87.08 kg

DRUGS (15)
  1. OPSUMIT [Suspect]
     Active Substance: MACITENTAN
     Indication: PULMONARY ARTERIAL HYPERTENSION
     Dosage: 10 MG, QD
     Route: 048
     Dates: start: 20190211
  2. ZOLPIDEM [Concomitant]
     Active Substance: ZOLPIDEM TARTRATE
     Dosage: 10 MG, PRN
     Dates: start: 2017
  3. ZYRTEC [Concomitant]
     Active Substance: CETIRIZINE HYDROCHLORIDE
     Dosage: 10 MG, QD
  4. OPSUMIT [Suspect]
     Active Substance: MACITENTAN
     Dosage: 10 MG, QD
     Route: 048
  5. ELIQUIS [Concomitant]
     Active Substance: APIXABAN
     Dosage: 2.5 MG, BID
     Dates: start: 2017
  6. LISINOPRIL. [Concomitant]
     Active Substance: LISINOPRIL
     Dosage: 20 MG, BID
  7. ESCITALOPRAM [Concomitant]
     Active Substance: ESCITALOPRAM OXALATE
     Dosage: 10 MG, QD
  8. HUMALOG [Concomitant]
     Active Substance: INSULIN LISPRO
     Dosage: UNK
     Dates: start: 201901
  9. BUMETANIDE. [Concomitant]
     Active Substance: BUMETANIDE
     Dosage: 1 MG, BID
  10. STOOL SOFTENER (DOCUSATE) [Concomitant]
     Active Substance: DOCUSATE
     Dosage: 100 MG, QD
     Dates: start: 2017
  11. CRANBERRY. [Concomitant]
     Active Substance: CRANBERRY
     Dosage: 500 MG, QD
     Dates: start: 2017
  12. METOPROLOL. [Concomitant]
     Active Substance: METOPROLOL
     Dosage: 50 MG, BID
     Dates: start: 2017
  13. SUMATRIPTAN. [Concomitant]
     Active Substance: SUMATRIPTAN
     Dosage: 100 MG, PRN
  14. ZETIA [Concomitant]
     Active Substance: EZETIMIBE
     Dosage: 10 MG, QD
  15. OXYBUTYNIN. [Concomitant]
     Active Substance: OXYBUTYNIN CHLORIDE
     Dosage: 10 MG, QD

REACTIONS (8)
  - Oedema peripheral [Unknown]
  - Dyspnoea [Not Recovered/Not Resolved]
  - Tooth disorder [Unknown]
  - Somnolence [Not Recovered/Not Resolved]
  - Arthropod bite [Unknown]
  - Feeling cold [Recovered/Resolved]
  - Death [Fatal]
  - Cellulitis [Recovering/Resolving]

NARRATIVE: CASE EVENT DATE: 201902
